FAERS Safety Report 20291725 (Version 1)
Quarter: 2022Q1

REPORT INFORMATION
  Report Type: Spontaneous
  Country: US (occurrence: US)
  Receive Date: 20220104
  Receipt Date: 20220104
  Transmission Date: 20220423
  Serious: No
  Sender: FDA-Public Use
  Company Number: US-ABBVIE-21K-163-3798133-00

PATIENT
  Sex: Male
  Weight: 88.530 kg

DRUGS (3)
  1. LUPRON DEPOT [Suspect]
     Active Substance: LEUPROLIDE ACETATE
     Indication: Prostate cancer
     Route: 030
     Dates: start: 2016, end: 2020
  2. LUPRON DEPOT [Suspect]
     Active Substance: LEUPROLIDE ACETATE
     Dosage: ONCE EVERY 4 MONTH DOSE
     Route: 030
     Dates: end: 202102
  3. LUPRON DEPOT [Suspect]
     Active Substance: LEUPROLIDE ACETATE
     Indication: Prostate cancer
     Dosage: LOWER DOSE ONCE A MONTH.
     Route: 030
     Dates: start: 202102

REACTIONS (7)
  - Cardiovascular disorder [Unknown]
  - Hyperphagia [Unknown]
  - Groin pain [Recovered/Resolved]
  - Peripheral venous disease [Unknown]
  - Pain in extremity [Not Recovered/Not Resolved]
  - Weight increased [Not Recovered/Not Resolved]
  - Asthenia [Not Recovered/Not Resolved]

NARRATIVE: CASE EVENT DATE: 20200101
